FAERS Safety Report 6003554-7 (Version None)
Quarter: 2008Q4

REPORT INFORMATION
  Report Type: 
  Country: None (occurrence: None)
  Receive Date: 20081216
  Receipt Date: 20081202
  Transmission Date: 20090506
  Serious: Yes (Hospitalization, Other)
  Sender: FDA-Public Use
  Company Number: US-ELI_LILLY_AND_COMPANY-US200812000725

PATIENT
  Sex: Female

DRUGS (2)
  1. FORTEO [Suspect]
     Dosage: UNK, UNK
     Dates: end: 20081101
  2. CHEMOTHERAPEUTICS NOS [Concomitant]

REACTIONS (3)
  - ASTHENIA [None]
  - FALL [None]
  - GAIT DISTURBANCE [None]
